FAERS Safety Report 26208908 (Version 1)
Quarter: 2025Q4

REPORT INFORMATION
  Report Type: Spontaneous
  Country: US (occurrence: None)
  Receive Date: 20251226
  Receipt Date: 20251226
  Transmission Date: 20260117
  Serious: Yes (Other)
  Sender: FDA-CTU
  Company Number: None

PATIENT
  Age: 58 Year
  Sex: Female

DRUGS (1)
  1. ALCOHOL [Suspect]
     Active Substance: ALCOHOL
     Dosage: FREQUENCY : EVERY OTHER WEEK;

REACTIONS (2)
  - Product dose omission in error [None]
  - Arthralgia [None]
